FAERS Safety Report 6109024-X (Version None)
Quarter: 2009Q1

REPORT INFORMATION
  Report Type: 
  Country: None (occurrence: None)
  Receive Date: 20090310
  Receipt Date: 20090226
  Transmission Date: 20090719
  Serious: Yes (Life-Threatening, Hospitalization)
  Sender: FDA-Public Use
  Company Number: FR-ROCHE-617394

PATIENT
  Sex: Male

DRUGS (6)
  1. CAPECITABINE [Suspect]
     Indication: METASTATIC GASTRIC CANCER
     Route: 065
  2. CISPLATIN [Suspect]
     Indication: METASTATIC GASTRIC CANCER
     Route: 065
  3. EPIRUBICIN HCL [Suspect]
     Indication: METASTATIC GASTRIC CANCER
     Route: 065
  4. DURAGESIC-100 [Concomitant]
     Indication: PAIN
     Dosage: DRUG NAME REPORTED AS DUROGESIC.
     Route: 058
     Dates: start: 20051208
  5. PRIMPERAN [Concomitant]
     Indication: NAUSEA
     Route: 048
     Dates: start: 20060105, end: 20060119
  6. BICARBONATE DE SODIUM [Concomitant]
     Indication: PROPHYLAXIS
     Route: 048
     Dates: start: 20060105

REACTIONS (1)
  - AGRANULOCYTOSIS [None]
